FAERS Safety Report 9249425 (Version 2)
Quarter: 2013Q2

REPORT INFORMATION
  Report Type: Spontaneous
  Country: HU (occurrence: HU)
  Receive Date: 20130423
  Receipt Date: 20130508
  Transmission Date: 20140414
  Serious: Yes (Other)
  Sender: FDA-Public Use
  Company Number: HU-ACTAVIS-2013-06946

PATIENT
  Age: 53 Year
  Sex: Male

DRUGS (5)
  1. CALCIUM FOLINATE (UNKNOWN) [Suspect]
     Indication: RECTAL CANCER STAGE III
     Dosage: UNK
     Route: 065
  2. FLUOROURACIL (UNKNOWN) [Suspect]
     Indication: RECTAL CANCER STAGE III
     Dosage: UNK
     Route: 065
  3. IRINOTECAN HYDROCHLORIDE (UNKNOWN) [Suspect]
     Indication: RECTAL CANCER STAGE III
     Dosage: UNK
     Route: 065
  4. BEVACIZUMAB [Suspect]
     Indication: RECTAL CANCER STAGE III
     Dosage: UNK
     Route: 065
  5. INSULIN [Concomitant]
     Indication: PRODUCT USED FOR UNKNOWN INDICATION
     Dosage: UNK
     Route: 065

REACTIONS (3)
  - Hepatic steatosis [Unknown]
  - Liver function test abnormal [Unknown]
  - Unevaluable event [Unknown]
